FAERS Safety Report 8260950-5 (Version None)
Quarter: 2012Q2

REPORT INFORMATION
  Report Type: 
  Country: None (occurrence: None)
  Receive Date: 20120405
  Receipt Date: 20120402
  Transmission Date: 20120825
  Serious: No
  Sender: FDA-Public Use
  Company Number: US-PFIZER INC-2012083396

PATIENT
  Sex: Male

DRUGS (1)
  1. CHANTIX [Suspect]
     Indication: SMOKING CESSATION THERAPY
     Dosage: UNK
     Route: 048
     Dates: start: 20120301

REACTIONS (7)
  - NAUSEA [None]
  - ERECTILE DYSFUNCTION [None]
  - INSOMNIA [None]
  - FEELING ABNORMAL [None]
  - ABNORMAL DREAMS [None]
  - TOBACCO USER [None]
  - VOMITING [None]
